FAERS Safety Report 6156834-9 (Version None)
Quarter: 2009Q2

REPORT INFORMATION
  Report Type: 
  Country: None (occurrence: None)
  Receive Date: 20090413
  Receipt Date: 20090413
  Transmission Date: 20091009
  Serious: Yes (Other)
  Sender: FDA-Public Use
  Company Number: None

PATIENT
  Age: 3 Year
  Sex: Male
  Weight: 18.5975 kg

DRUGS (1)
  1. SINGULAIR [Suspect]
     Indication: MULTIPLE ALLERGIES
     Dosage: 1 TABLET DAILY PO
     Route: 048
     Dates: start: 20090101, end: 20090401

REACTIONS (5)
  - BRUXISM [None]
  - MOOD ALTERED [None]
  - MUSCLE SPASMS [None]
  - THIRST [None]
  - WEIGHT INCREASED [None]
